FAERS Safety Report 7110867-4 (Version None)
Quarter: 2010Q4

REPORT INFORMATION
  Report Type: 
  Country: None (occurrence: None)
  Receive Date: 20101118
  Receipt Date: 20101105
  Transmission Date: 20110411
  Serious: Yes (Congenital Anomaly, Other)
  Sender: FDA-Public Use
  Company Number: PHHY2010US76038

PATIENT
  Weight: 76 kg

DRUGS (8)
  1. NEORAL [Suspect]
     Indication: RENAL TRANSPLANT
     Dosage: 150 MG, BID
     Route: 048
  2. AZATHIOPRINE [Concomitant]
     Indication: TRANSPLANT
     Dosage: 125MG, QD
     Route: 064
  3. PREDNISONE [Concomitant]
     Dosage: 125MG, QD
     Route: 064
  4. NIFEPIDINE EXTENDED RELEASE [Concomitant]
     Dosage: 60MG, QD
     Route: 064
  5. METOPROLOL SUCCINATE EXTENDED RELEASE [Concomitant]
  6. PANTOPRAZOLE [Concomitant]
     Indication: HYPERTENSION
     Dosage: 40 MG, QD
     Route: 064
  7. CALCIUM WITH VITAMIN D [Concomitant]
     Dosage: 600MG, BIDT
     Route: 064
  8. ASPIRIN [Concomitant]
     Dosage: 81MG, QD
     Route: 064

REACTIONS (2)
  - CYTOGENETIC ABNORMALITY [None]
  - DRUG EXPOSURE DURING PREGNANCY [None]
